FAERS Safety Report 4891206-6 (Version None)
Quarter: 2006Q1

REPORT INFORMATION
  Report Type: 
  Country: None (occurrence: None)
  Receive Date: 20060125
  Receipt Date: 20051201
  Transmission Date: 20060701
  Serious: Yes (Hospitalization)
  Sender: FDA-Public Use
  Company Number: FRAGNR03065

PATIENT
  Age: 31 Year
  Sex: Female

DRUGS (5)
  1. AMOXICILLINE + AC CLAVULANIQUE [Suspect]
     Route: 048
     Dates: start: 20031002, end: 20031002
  2. LYSOPAINE [Concomitant]
     Route: 065
  3. RHINOFLUIMUCIL [Concomitant]
     Route: 065
  4. BRONKIREX [Concomitant]
     Route: 065
  5. PREVISCAN [Concomitant]
     Route: 065

REACTIONS (5)
  - ASTHMA [None]
  - DYSPNOEA [None]
  - ECZEMA [None]
  - PRURITUS [None]
  - RASH [None]
